FAERS Safety Report 20636750 (Version 2)
Quarter: 2022Q2

REPORT INFORMATION
  Report Type: Spontaneous
  Country: JP (occurrence: JP)
  Receive Date: 20220325
  Receipt Date: 20220518
  Transmission Date: 20220721
  Serious: Yes (Death)
  Sender: FDA-Public Use
  Company Number: JP-Eisai-202113350_LEN-HCC_P_1

PATIENT
  Age: 80 Year
  Sex: Male
  Weight: 55 kg

DRUGS (1)
  1. LENVATINIB [Suspect]
     Active Substance: LENVATINIB
     Indication: Hepatocellular carcinoma
     Route: 048

REACTIONS (2)
  - Liver carcinoma ruptured [Fatal]
  - Shock haemorrhagic [Fatal]
